FAERS Safety Report 12905404 (Version 2)
Quarter: 2016Q4

REPORT INFORMATION
  Report Type: Spontaneous
  Country: US (occurrence: US)
  Receive Date: 20161103
  Receipt Date: 20161109
  Transmission Date: 20170207
  Serious: Yes (Other)
  Sender: FDA-Public Use
  Company Number: US-ROCHE-1833914

PATIENT
  Age: 57 Year
  Sex: Male
  Weight: 76.73 kg

DRUGS (2)
  1. XELODA [Suspect]
     Active Substance: CAPECITABINE
     Indication: COLON CANCER STAGE IV
     Dosage: FOUR TABLETS IN MORNING AND FOUR AT NIGHT (2000 MG TWICE DAILY)
     Route: 065
     Dates: start: 2016
  2. OXYCODON [Concomitant]
     Active Substance: OXYCODONE
     Indication: PAIN
     Dosage: HE TOOK WHOLE MONTHS
     Route: 065

REACTIONS (21)
  - Back pain [Unknown]
  - Diarrhoea [Not Recovered/Not Resolved]
  - Temperature intolerance [Unknown]
  - Skin disorder [Unknown]
  - Impaired healing [Not Recovered/Not Resolved]
  - Chemical injury [Not Recovered/Not Resolved]
  - Colon neoplasm [Not Recovered/Not Resolved]
  - Rhinorrhoea [Unknown]
  - Rash macular [Not Recovered/Not Resolved]
  - Neuropathy peripheral [Unknown]
  - Rash [Not Recovered/Not Resolved]
  - Skin exfoliation [Unknown]
  - Weight decreased [Not Recovered/Not Resolved]
  - Testicular disorder [Unknown]
  - Dry skin [Not Recovered/Not Resolved]
  - Neck pain [Unknown]
  - Pain in extremity [Unknown]
  - Hypoaesthesia [Not Recovered/Not Resolved]
  - Pain [Not Recovered/Not Resolved]
  - Oral pain [Not Recovered/Not Resolved]
  - Malaise [Unknown]

NARRATIVE: CASE EVENT DATE: 201610
